FAERS Safety Report 5102207-7 (Version None)
Quarter: 2006Q3

REPORT INFORMATION
  Report Type: 
  Country: None (occurrence: None)
  Receive Date: 20060907
  Receipt Date: 20060828
  Transmission Date: 20061208
  Serious: Yes (Hospitalization)
  Sender: FDA-Public Use
  Company Number: 163-21880-06081352

PATIENT
  Age: 55 Year
  Sex: Female
  Weight: 68.0396 kg

DRUGS (3)
  1. REVLIMID [Suspect]
     Indication: MULTIPLE MYELOMA
     Dosage: 25 MG, DAILY, ORAL
     Route: 048
     Dates: start: 20060718
  2. DEXAMETHASONE TAB [Concomitant]
  3. PROCRIT [Concomitant]

REACTIONS (3)
  - DIALYSIS [None]
  - INCORRECT DOSE ADMINISTERED [None]
  - PERICARDIAL EFFUSION [None]
